FAERS Safety Report 11886520 (Version 1)
Quarter: 2016Q1

REPORT INFORMATION
  Report Type: Other
  Country: US (occurrence: US)
  Receive Date: 20160104
  Receipt Date: 20160104
  Transmission Date: 20160526
  Serious: Yes (Other)
  Sender: FDA-Public Use
  Company Number: US-SIM_00689_2015

PATIENT
  Sex: Female

DRUGS (2)
  1. COMPLETE EYE RELIEF (HOMEOPATHIC) [Suspect]
     Active Substance: HOMEOPATHICS
     Indication: PRODUCT USED FOR UNKNOWN INDICATION
     Dosage: 1 DROP IN EACH EYE/ONCE DAILY/
     Route: 047
     Dates: start: 20151101, end: 201511
  2. COMPLETE EYE RELIEF (HOMEOPATHIC) [Suspect]
     Active Substance: HOMEOPATHICS
     Dosage: NI/NI/
     Route: 047
     Dates: start: 201511, end: 20151202

REACTIONS (3)
  - Expired product administered [Unknown]
  - Vitreous floaters [Recovered/Resolved]
  - Retinal tear [Recovered/Resolved]

NARRATIVE: CASE EVENT DATE: 201511
